FAERS Safety Report 19453701 (Version 1)
Quarter: 2021Q2

REPORT INFORMATION
  Report Type: Spontaneous
  Country: CN (occurrence: CN)
  Receive Date: 20210623
  Receipt Date: 20210623
  Transmission Date: 20210717
  Serious: Yes (Other)
  Sender: FDA-Public Use
  Company Number: CN-PFIZER INC-2021678932

PATIENT
  Age: 47 Year
  Sex: Female
  Weight: 70 kg

DRUGS (2)
  1. METHYLPREDNISOLONE SODIUM SUCCINATE. [Suspect]
     Active Substance: METHYLPREDNISOLONE SODIUM SUCCINATE
     Indication: PNEUMONIA
  2. METHYLPREDNISOLONE SODIUM SUCCINATE. [Suspect]
     Active Substance: METHYLPREDNISOLONE SODIUM SUCCINATE
     Indication: CONNECTIVE TISSUE DISORDER
     Dosage: 200 MG, 1X/DAY
     Route: 041
     Dates: start: 20210518, end: 20210522

REACTIONS (3)
  - Sodium retention [Recovering/Resolving]
  - Brain natriuretic peptide increased [Recovering/Resolving]
  - Fluid retention [Recovering/Resolving]

NARRATIVE: CASE EVENT DATE: 20210522
